FAERS Safety Report 15579048 (Version 5)
Quarter: 2019Q4

REPORT INFORMATION
  Report Type: Spontaneous
  Country: US (occurrence: US)
  Receive Date: 20181102
  Receipt Date: 20191024
  Transmission Date: 20200122
  Serious: Yes (Other)
  Sender: FDA-Public Use
  Company Number: US-PFIZER INC-2018447780

PATIENT
  Age: 78 Year
  Sex: Male

DRUGS (2)
  1. EPINEPHRINE/LIDOCAINE HYDROCHLORIDE [Suspect]
     Active Substance: EPINEPHRINE\LIDOCAINE HYDROCHLORIDE
     Indication: ANAESTHESIA
     Dosage: UNK (INJ MDV 50ML)/ (LIDOCAINE HCL2% AND EPINEPHRINE 1:100,000)
     Dates: start: 20180802
  2. EPINEPHRINE/LIDOCAINE HYDROCHLORIDE [Suspect]
     Active Substance: EPINEPHRINE\LIDOCAINE HYDROCHLORIDE
     Dosage: UNK

REACTIONS (3)
  - Skin necrosis [Unknown]
  - Vasoconstriction [Unknown]
  - Impaired healing [Unknown]

NARRATIVE: CASE EVENT DATE: 20180828
